FAERS Safety Report 7152372-5 (Version None)
Quarter: 2010Q4

REPORT INFORMATION
  Report Type: 
  Country: None (occurrence: None)
  Receive Date: 20101123
  Receipt Date: 20101112
  Transmission Date: 20110411
  Serious: Yes (Hospitalization)
  Sender: FDA-Public Use
  Company Number: 020746

PATIENT
  Sex: Male
  Weight: 82.4 kg

DRUGS (2)
  1. LACOSAMIDE [Suspect]
     Indication: EPILEPSY
     Dosage: (200 MG BID ORAL)
     Route: 048
     Dates: start: 20091113
  2. TOPIRAMATE [Concomitant]

REACTIONS (4)
  - GRAND MAL CONVULSION [None]
  - REFUSAL OF TREATMENT BY PATIENT [None]
  - TREATMENT NONCOMPLIANCE [None]
  - WHITE BLOOD CELL COUNT INCREASED [None]
